FAERS Safety Report 4714517-3 (Version None)
Quarter: 2005Q3

REPORT INFORMATION
  Report Type: 
  Country: None (occurrence: None)
  Receive Date: 20050712
  Receipt Date: 20050624
  Transmission Date: 20060218
  Serious: Yes (Hospitalization)
  Sender: FDA-Public Use
  Company Number: 032-10

PATIENT
  Age: 68 Year
  Sex: Male

DRUGS (9)
  1. TEVETEN [Suspect]
     Dosage: 600 MG QD PO
     Route: 048
     Dates: start: 20010329
  2. DOXAZOSIN MESYLATE [Suspect]
     Indication: HYPERTENSION
     Dosage: 8 MG UNK PO
     Route: 048
     Dates: start: 20010328, end: 20010619
  3. CYCLOSPORINE [Concomitant]
  4. MYCOPHENOLATE MOFETIL [Concomitant]
  5. PREDNISOLONE [Concomitant]
  6. AMPHOTERICIN B [Concomitant]
  7. MAGNESIUM HYDROGEN ASPARTATE [Concomitant]
  8. POTASSIUM CHLORIDE [Concomitant]
  9. SULFAMETHOXAZOLE + TRIMETHOPRIM [Concomitant]

REACTIONS (2)
  - CYTOMEGALOVIRUS INFECTION [None]
  - VERTIGO [None]
